FAERS Safety Report 17498263 (Version 1)
Quarter: 2020Q1

REPORT INFORMATION
  Report Type: Spontaneous
  Country: CN (occurrence: CN)
  Receive Date: 20200304
  Receipt Date: 20200304
  Transmission Date: 20200409
  Serious: Yes (Other)
  Sender: FDA-Public Use
  Company Number: NVSC2020CN061902

PATIENT

DRUGS (3)
  1. VOLTAREN EMULGEL [Suspect]
     Active Substance: DICLOFENAC DIETHYLAMINE
     Indication: ANAL ECZEMA
  2. MUPIROCIN. [Suspect]
     Active Substance: MUPIROCIN
     Indication: ANAL ULCER
     Dosage: UNK UNK, BID
     Route: 065
  3. VOLTAREN EMULGEL [Suspect]
     Active Substance: DICLOFENAC DIETHYLAMINE
     Indication: ANAL ULCER
     Dosage: 20 G
     Route: 065

REACTIONS (4)
  - Anal ulcer [Recovered/Resolved]
  - Drug ineffective for unapproved indication [Unknown]
  - Inflammation [Unknown]
  - Pain [Unknown]
